FAERS Safety Report 19054965 (Version 1)
Quarter: 2021Q1

REPORT INFORMATION
  Report Type: Report from Study
  Country: None (occurrence: US)
  Receive Date: 20210325
  Receipt Date: 20210325
  Transmission Date: 20210420
  Serious: Yes (Other)
  Sender: FDA-Public Use
  Company Number: US-ABBVIE-21K-163-3795113-00

PATIENT
  Age: 53 Year
  Sex: Female
  Weight: 104.42 kg

DRUGS (8)
  1. VITAMIN C [Concomitant]
     Active Substance: ASCORBIC ACID
     Indication: PRODUCT USED FOR UNKNOWN INDICATION
  2. ZINC. [Concomitant]
     Active Substance: ZINC
     Indication: PRODUCT USED FOR UNKNOWN INDICATION
  3. BUSPIRONE [Concomitant]
     Active Substance: BUSPIRONE HYDROCHLORIDE
     Indication: ANXIETY
  4. TERBINAFINE. [Concomitant]
     Active Substance: TERBINAFINE
     Indication: RASH
  5. HUMIRA [Suspect]
     Active Substance: ADALIMUMAB
     Indication: PSORIATIC ARTHROPATHY
     Route: 058
     Dates: start: 202008, end: 20210101
  6. HUMIRA [Suspect]
     Active Substance: ADALIMUMAB
     Indication: PSORIASIS
     Route: 058
     Dates: start: 20210224
  7. CALCIPOTRIENE. [Concomitant]
     Active Substance: CALCIPOTRIENE
     Indication: PSORIASIS
  8. VITAMIN D3 [Concomitant]
     Active Substance: CHOLECALCIFEROL
     Indication: PRODUCT USED FOR UNKNOWN INDICATION

REACTIONS (13)
  - SARS-CoV-2 test positive [Recovering/Resolving]
  - Viral rash [Recovering/Resolving]
  - Lacrimation increased [Recovering/Resolving]
  - Nodule [Recovered/Resolved]
  - Oesophageal pain [Recovering/Resolving]
  - Lymph node pain [Recovering/Resolving]
  - Psoriasis [Recovering/Resolving]
  - Pneumonia [Recovered/Resolved]
  - Rhinorrhoea [Recovered/Resolved]
  - Feeling abnormal [Recovering/Resolving]
  - Bronchitis [Recovered/Resolved]
  - Epistaxis [Recovered/Resolved]
  - Lymphadenopathy [Recovering/Resolving]

NARRATIVE: CASE EVENT DATE: 202101
